FAERS Safety Report 16775087 (Version 3)
Quarter: 2020Q2

REPORT INFORMATION
  Report Type: Spontaneous
  Country: US (occurrence: US)
  Receive Date: 20190905
  Receipt Date: 20200415
  Transmission Date: 20200713
  Serious: Yes (Other)
  Sender: FDA-Public Use
  Company Number: US-GILEAD-2019-0426512

PATIENT
  Age: 51 Year
  Sex: Male

DRUGS (26)
  1. BIKTARVY [Concomitant]
     Active Substance: BICTEGRAVIR SODIUM\EMTRICITABINE\TENOFOVIR ALAFENAMIDE FUMARATE
  2. VALACYCLOVIR HCL [Concomitant]
     Active Substance: VALACYCLOVIR HYDROCHLORIDE
  3. GABAPENTIN. [Concomitant]
     Active Substance: GABAPENTIN
  4. CEPHALEXIN [CEFALEXIN] [Concomitant]
     Active Substance: CEPHALEXIN
  5. CHANTIX [Concomitant]
     Active Substance: VARENICLINE TARTRATE
  6. AMOXICILLIN. [Concomitant]
     Active Substance: AMOXICILLIN
  7. NAPROXEN. [Concomitant]
     Active Substance: NAPROXEN
  8. TRUVADA [Suspect]
     Active Substance: EMTRICITABINE\TENOFOVIR DISOPROXIL FUMARATE
     Indication: HIV INFECTION
     Dosage: UNK
     Route: 048
     Dates: start: 2006, end: 2017
  9. IBUPROFEN. [Concomitant]
     Active Substance: IBUPROFEN
  10. CLOTRIMAZOLE AND BETAMETHASONE [Concomitant]
     Active Substance: BETAMETHASONE\CLOTRIMAZOLE
  11. LOPERAMIDE [Concomitant]
     Active Substance: LOPERAMIDE
  12. PANTOPRAZOLE SODIUM. [Concomitant]
     Active Substance: PANTOPRAZOLE SODIUM
  13. TESTOSTERONE. [Concomitant]
     Active Substance: TESTOSTERONE
  14. HYDROCODONE/ACETAMINOPHEN [Concomitant]
     Active Substance: ACETAMINOPHEN\HYDROCODONE
  15. CLINDAMYCIN. [Concomitant]
     Active Substance: CLINDAMYCIN
  16. CYCLOBENZAPRINE. [Concomitant]
     Active Substance: CYCLOBENZAPRINE
  17. PEG 3350 + ELECTROLYTES [Concomitant]
  18. ONDANSETRON [Concomitant]
     Active Substance: ONDANSETRON
  19. OXYCODONE AND ACETAMINOPHEN [Concomitant]
     Active Substance: ACETAMINOPHEN\OXYCODONE HYDROCHLORIDE
  20. VIAGRA [Concomitant]
     Active Substance: SILDENAFIL CITRATE
  21. ATRIPLA [Suspect]
     Active Substance: EFAVIRENZ\EMTRICITABINE\TENOFOVIR DISOPROXIL FUMARATE
     Indication: HIV INFECTION
     Dosage: UNK
     Route: 048
     Dates: start: 20120529, end: 20160218
  22. GENVOYA [Concomitant]
     Active Substance: COBICISTAT\ELVITEGRAVIR\EMTRICITABINE\TENOFOVIR ALAFENAMIDE FUMARATE
  23. ALBUTEROL HFA [Concomitant]
     Active Substance: ALBUTEROL SULFATE
  24. TRAZODONE [Concomitant]
     Active Substance: TRAZODONE HYDROCHLORIDE
  25. OMEPRAZOLE. [Concomitant]
     Active Substance: OMEPRAZOLE
  26. ACETAMINOPHEN AND CODEINE [Concomitant]
     Active Substance: ACETAMINOPHEN\CODEINE PHOSPHATE

REACTIONS (8)
  - Anhedonia [Unknown]
  - Tooth loss [Recovered/Resolved]
  - Anxiety [Unknown]
  - Pain [Unknown]
  - Bone density decreased [Recovered/Resolved]
  - Osteoporosis [Not Recovered/Not Resolved]
  - Emotional distress [Unknown]
  - Economic problem [Unknown]

NARRATIVE: CASE EVENT DATE: 201106
